FAERS Safety Report 8892509 (Version 1)
Quarter: 2012Q4

REPORT INFORMATION
  Report Type: 
  Country: US (occurrence: US)
  Receive Date: 20121107
  Receipt Date: 20121107
  Transmission Date: 20130627
  Serious: No
  Sender: FDA-Public Use
  Company Number: US-009507513-1211USA001184

PATIENT
  Sex: Male

DRUGS (1)
  1. PROVENTIL [Suspect]
     Dosage: UNK, prn
     Route: 055
     Dates: start: 2002

REACTIONS (3)
  - Expired drug administered [Unknown]
  - Product quality issue [Unknown]
  - No adverse event [Unknown]
